FAERS Safety Report 23060522 (Version 3)
Quarter: 2023Q4

REPORT INFORMATION
  Report Type: Spontaneous
  Country: GB (occurrence: GB)
  Receive Date: 20231012
  Receipt Date: 20231121
  Transmission Date: 20240110
  Serious: Yes (Other)
  Sender: FDA-Public Use
  Company Number: GB-002147023-NVSC2023GB219861

PATIENT
  Age: 64 Year
  Sex: Male
  Weight: 65.5 kg

DRUGS (1)
  1. ASCIMINIB [Suspect]
     Active Substance: ASCIMINIB
     Indication: Chronic myeloid leukaemia
     Dosage: 20 MG, QD
     Route: 065
     Dates: start: 20230130

REACTIONS (2)
  - Cytopenia [Recovered/Resolved]
  - Off label use [Unknown]
